FAERS Safety Report 21045642 (Version 1)
Quarter: 2022Q3

REPORT INFORMATION
  Report Type: Spontaneous
  Country: US (occurrence: US)
  Receive Date: 20220706
  Receipt Date: 20220706
  Transmission Date: 20221027
  Serious: No
  Sender: FDA-Public Use
  Company Number: ENDG21-05795

PATIENT
  Sex: Male

DRUGS (1)
  1. CALCITONIN SALMON [Suspect]
     Active Substance: CALCITONIN SALMON
     Indication: Product used for unknown indication
     Dosage: 1 DF, OD (ONE A DAY/ALTERNATE NOSTRIL)
     Route: 045
     Dates: start: 20210818

REACTIONS (4)
  - Product dose omission issue [Not Recovered/Not Resolved]
  - Product packaging quantity issue [Not Recovered/Not Resolved]
  - Product substitution issue [Not Recovered/Not Resolved]
  - Drug ineffective [Unknown]

NARRATIVE: CASE EVENT DATE: 20210101
